FAERS Safety Report 8394102-5 (Version None)
Quarter: 2012Q2

REPORT INFORMATION
  Report Type: 
  Country: None (occurrence: None)
  Receive Date: 20120530
  Receipt Date: 20120523
  Transmission Date: 20120825
  Serious: Yes (Hospitalization)
  Sender: FDA-Public Use
  Company Number: US-JNJFOC-20120518247

PATIENT
  Sex: Female

DRUGS (10)
  1. TRICOR [Concomitant]
     Route: 065
  2. NORFLOXACIN [Concomitant]
     Route: 065
  3. AMBIEN [Concomitant]
     Route: 065
  4. STELARA [Suspect]
     Indication: PSORIATIC ARTHROPATHY
     Route: 058
     Dates: start: 20101115
  5. CELEBREX [Concomitant]
     Route: 065
  6. CRESTOR [Concomitant]
     Route: 065
  7. XANAX [Concomitant]
     Route: 065
  8. DARVOCET [Concomitant]
     Route: 065
  9. STELARA [Suspect]
     Indication: PSORIASIS
     Route: 058
     Dates: start: 20101115
  10. DIOVAN [Concomitant]
     Route: 065

REACTIONS (1)
  - HEPATIC NEOPLASM MALIGNANT [None]
